FAERS Safety Report 4942619-5 (Version None)
Quarter: 2006Q1

REPORT INFORMATION
  Report Type: 
  Country: None (occurrence: None)
  Receive Date: 20060310
  Receipt Date: 20060228
  Transmission Date: 20060701
  Serious: Yes (Hospitalization)
  Sender: FDA-Public Use
  Company Number: 2005BI006044

PATIENT
  Age: 38 Year
  Sex: Female

DRUGS (1)
  1. AVONEX [Suspect]
     Indication: MULTIPLE SCLEROSIS
     Dosage: 30 UG;QW;IM
     Route: 030
     Dates: start: 20040917

REACTIONS (4)
  - ABDOMINAL HERNIA [None]
  - GASTRIC INFECTION [None]
  - POSTOPERATIVE WOUND COMPLICATION [None]
  - SURGICAL PROCEDURE REPEATED [None]
